FAERS Safety Report 8632320 (Version 10)
Quarter: 2013Q2

REPORT INFORMATION
  Report Type: Spontaneous
  Country: BR (occurrence: BR)
  Receive Date: 20120625
  Receipt Date: 20130508
  Transmission Date: 20140414
  Serious: Yes (Other)
  Sender: FDA-Public Use
  Company Number: BR-PFIZER INC-2012148670

PATIENT
  Age: 58 Year
  Sex: Male
  Weight: 91 kg

DRUGS (13)
  1. SUTENT [Suspect]
     Indication: RENAL CELL CARCINOMA
     Dosage: 50 MG, 1X/DAY ( CYCLE 4 TO 2)
     Route: 048
     Dates: start: 20120531
  2. SUTENT [Suspect]
     Dosage: 50 MG IN ALTERNATE DAYS
     Route: 048
  3. SUTENT [Suspect]
     Dosage: 50 MG, 1X/DAY
  4. CAPTOPRIL [Concomitant]
  5. PARACETAMOL [Concomitant]
     Indication: PAIN
     Dosage: STRENGTH 750 MG
  6. DICLOFENAC [Concomitant]
     Dosage: STRENGTH 1000MG
  7. AREDIA [Concomitant]
     Indication: BONE LESION
     Dosage: 500 UG, ONCE MONTHLY
  8. CODEINE [Concomitant]
  9. GABAPENTIN [Concomitant]
  10. TRAMADOL [Concomitant]
  11. DEVIL^S CLAW [Concomitant]
  12. SULFADIAZINE SILVER [Concomitant]
  13. ARAVA [Concomitant]

REACTIONS (17)
  - Erysipelas [Recovering/Resolving]
  - Haemorrhage [Unknown]
  - Dermatitis [Recovering/Resolving]
  - Pruritus [Unknown]
  - Chromaturia [Unknown]
  - Rash [Recovering/Resolving]
  - Pain in extremity [Not Recovered/Not Resolved]
  - Dry skin [Unknown]
  - Pain in extremity [Not Recovered/Not Resolved]
  - Arthralgia [Not Recovered/Not Resolved]
  - Blister [Recovering/Resolving]
  - Oral pain [Unknown]
  - Skin exfoliation [Unknown]
  - Yellow skin [Unknown]
  - Dysgeusia [Recovered/Resolved]
  - Wound [Not Recovered/Not Resolved]
  - Impaired healing [Not Recovered/Not Resolved]
